FAERS Safety Report 25842095 (Version 1)
Quarter: 2025Q3

REPORT INFORMATION
  Report Type: Spontaneous
  Country: CH (occurrence: CH)
  Receive Date: 20250924
  Receipt Date: 20250924
  Transmission Date: 20251021
  Serious: Yes (Other)
  Sender: NOVARTIS
  Company Number: CH-002147023-NVSC2022CH211905

PATIENT
  Sex: Female

DRUGS (4)
  1. EVEROLIMUS [Suspect]
     Active Substance: EVEROLIMUS
     Indication: Perivascular epithelioid cell tumour
     Dosage: 2.5 MG, QD
     Route: 065
     Dates: start: 20220114, end: 20220201
  2. EVEROLIMUS [Suspect]
     Active Substance: EVEROLIMUS
     Indication: Cerebrosclerosis
     Dosage: 2.5 MG, QD
     Route: 065
     Dates: start: 20220225, end: 20220331
  3. EVEROLIMUS [Suspect]
     Active Substance: EVEROLIMUS
     Dosage: 2.5 MG, QD
     Route: 065
     Dates: start: 20220404
  4. EVEROLIMUS [Suspect]
     Active Substance: EVEROLIMUS
     Dosage: 3 MG, QD
     Route: 065
     Dates: end: 2023

REACTIONS (4)
  - Neutropenia [Recovered/Resolved]
  - Influenza [Unknown]
  - Fatigue [Unknown]
  - Off label use [Unknown]
